FAERS Safety Report 14960866 (Version 3)
Quarter: 2018Q4

REPORT INFORMATION
  Report Type: Report from Study
  Country: US (occurrence: US)
  Receive Date: 20180531
  Receipt Date: 20181017
  Transmission Date: 20190204
  Serious: No
  Sender: FDA-Public Use
  Company Number: US-AMGEN-USASL2017192399

PATIENT
  Sex: Male

DRUGS (3)
  1. REPATHA [Suspect]
     Active Substance: EVOLOCUMAB
     Indication: BLOOD CHOLESTEROL INCREASED
     Dosage: 140 MG, Q2WK
     Route: 065
  2. REPATHA [Suspect]
     Active Substance: EVOLOCUMAB
     Indication: HYPERCHOLESTEROLAEMIA
  3. REPATHA [Suspect]
     Active Substance: EVOLOCUMAB
     Indication: CARDIOVASCULAR DISORDER

REACTIONS (12)
  - Joint swelling [Unknown]
  - Injection site vesicles [Unknown]
  - Musculoskeletal pain [Recovered/Resolved]
  - Injection site swelling [Unknown]
  - Arthropathy [Recovered/Resolved]
  - Pain [Unknown]
  - Gait disturbance [Unknown]
  - Arthralgia [Unknown]
  - Cardiac disorder [Unknown]
  - Osteoarthritis [Unknown]
  - Injection site erythema [Unknown]
  - Joint range of motion decreased [Not Recovered/Not Resolved]
